FAERS Safety Report 6191097-X (Version None)
Quarter: 2009Q2

REPORT INFORMATION
  Report Type: 
  Country: None (occurrence: None)
  Receive Date: 20090513
  Receipt Date: 20090513
  Transmission Date: 20091009
  Serious: Yes (Death)
  Sender: FDA-Public Use
  Company Number: None

PATIENT
  Sex: Male

DRUGS (12)
  1. REVLIMID [Suspect]
     Indication: MULTIPLE MYELOMA
     Dosage: 25MG  DAILY 21D ORALLY
     Route: 048
  2. AREDIA [Concomitant]
  3. GABAPENTIN [Concomitant]
  4. DARVOCET [Concomitant]
  5. LASIX [Concomitant]
  6. ATENOLOL [Concomitant]
  7. FLOMAX [Concomitant]
  8. K-TAB [Concomitant]
  9. WARFARIN SODIUM [Concomitant]
  10. EPOETIN [Concomitant]
  11. LIDODERM [Concomitant]
  12. MULTI-VITAMIN [Concomitant]

REACTIONS (3)
  - ANAEMIA [None]
  - GENERAL PHYSICAL HEALTH DETERIORATION [None]
  - RENAL FAILURE ACUTE [None]
